FAERS Safety Report 8817561 (Version 1)
Quarter: 2012Q4

REPORT INFORMATION
  Report Type: 
  Country: GB (occurrence: GB)
  Receive Date: 20121004
  Receipt Date: 20121004
  Transmission Date: 20130627
  Serious: Yes (Other)
  Sender: FDA-Public Use
  Company Number: GB-B.I. PHARMACEUTICALS,INC./RIDGEFIELD-2012-UK-01263UK

PATIENT
  Age: 81 Year
  Sex: Female
  Weight: 64 kg

DRUGS (15)
  1. DABIGATRAN [Suspect]
     Indication: ATRIAL FIBRILLATION
     Dosage: 220 mg
     Route: 048
     Dates: start: 20120817, end: 20120820
  2. BISOPROLOL FUMARATE [Concomitant]
     Dosage: 10 mg
     Dates: start: 20120723
  3. DIGOXIN [Concomitant]
     Dosage: 125 mcg
     Dates: start: 20120814
  4. DOUBLEBASE [Concomitant]
     Dosage: 1df
     Dates: start: 20120424
  5. FUROSEMIDE [Concomitant]
     Dosage: 40 mg
     Dates: start: 20120903
  6. HYDROCORTISONE [Concomitant]
     Dosage: 1 RT
     Dates: start: 20110421
  7. LATANOPROST [Concomitant]
     Dosage: 5 ml
     Route: 031
     Dates: start: 20120806
  8. OLIVE OIL [Concomitant]
     Dosage: 30 ml
     Dates: start: 20120903
  9. SALBUTAMOL [Concomitant]
     Dosage: 200 mcg
     Route: 055
     Dates: start: 20120828
  10. SALMETEROL AND FLUTICASONE [Concomitant]
     Route: 055
     Dates: start: 20120702
  11. SPIRONOLACTONE [Concomitant]
     Dosage: 17.5 mg
     Dates: start: 20120828
  12. TEMAZEPAM [Concomitant]
     Indication: SLEEP DISORDER
     Dosage: 10 mg
     Dates: start: 20120820
  13. VISCOTEARS [Concomitant]
     Dosage: 0.8 RT
     Route: 031
     Dates: start: 20120806
  14. WARFARIN [Concomitant]
     Indication: ATRIAL FIBRILLATION
     Route: 048
     Dates: end: 20120813
  15. ZAPAIN [Concomitant]
     Dates: start: 20120814

REACTIONS (6)
  - Oesophagitis [Recovered/Resolved]
  - Throat irritation [Recovered/Resolved]
  - Chest pain [Recovered/Resolved]
  - Nausea [Recovered/Resolved]
  - Oropharyngeal pain [Recovered/Resolved]
  - Vomiting [Recovered/Resolved]
